FAERS Safety Report 23844474 (Version 1)
Quarter: 2024Q2

REPORT INFORMATION
  Report Type: Spontaneous
  Country: US (occurrence: US)
  Receive Date: 20240510
  Receipt Date: 20240510
  Transmission Date: 20240716
  Serious: No
  Sender: FDA-Public Use
  Company Number: US-009507513-2405USA001674

PATIENT
  Sex: Male

DRUGS (1)
  1. STEGLATRO [Suspect]
     Active Substance: ERTUGLIFLOZIN PIDOLATE
     Indication: Diabetes mellitus
     Dosage: UNK
     Route: 048
     Dates: start: 2020

REACTIONS (1)
  - Ill-defined disorder [Not Recovered/Not Resolved]
